FAERS Safety Report 7656062-1 (Version None)
Quarter: 2011Q3

REPORT INFORMATION
  Report Type: 
  Country: None (occurrence: None)
  Receive Date: 20110801
  Receipt Date: 20110718
  Transmission Date: 20111222
  Serious: Yes (Hospitalization, Disabling)
  Sender: FDA-Public Use
  Company Number: OSCN-NO-0903S-0139

PATIENT
  Age: 37 Year
  Sex: Male
  Weight: 58 kg

DRUGS (12)
  1. GADOLINIUM (UNSPECIFIED) (GADOLINIUM) [Suspect]
     Indication: RENAL TRANSPLANT
     Dates: start: 20010601, end: 20010601
  2. ASPIRIN [Concomitant]
  3. METOPROLOL TARTRATE [Concomitant]
  4. DILTIAZEM [Concomitant]
  5. LEVOTHYROXINE SODIUM [Concomitant]
  6. OMNISCAN [Suspect]
     Indication: RENAL TRANSPLANT
     Dosage: 30 ML, SINGLE DOSE, INTRAVENOUS
     Route: 042
     Dates: start: 20020429, end: 20020429
  7. MEGLUMINE GADOTERATE (DOTAREM0 (MEGLUMINE GADOTERATE) [Concomitant]
  8. CALCIUM ACETATE (CALCIUM ACETATE) [Concomitant]
  9. DIALYSIS VITAMINS (VITAMINS) [Concomitant]
  10. INSULIN (INSULIN) [Concomitant]
  11. OMEPRAZOLE [Concomitant]
  12. SACCHARATED IRON OXIDE (VENOFER) (SACCHARATED IRON OXIDE) [Concomitant]

REACTIONS (3)
  - NEPHROGENIC SYSTEMIC FIBROSIS [None]
  - GAIT DISTURBANCE [None]
  - SCLERODERMA [None]
